FAERS Safety Report 4466704-X (Version None)
Quarter: 2004Q4

REPORT INFORMATION
  Report Type: 
  Country: None (occurrence: None)
  Receive Date: 20041001
  Receipt Date: 20040922
  Transmission Date: 20050328
  Serious: Yes (Other)
  Sender: FDA-Public Use
  Company Number: USA-2004-0016985

PATIENT
  Age: 41 Year
  Sex: Female

DRUGS (1)
  1. OXYCONTIN [Suspect]
     Indication: PAIN

REACTIONS (7)
  - AGGRESSION [None]
  - DRUG DEPENDENCE [None]
  - IMPAIRED WORK ABILITY [None]
  - MURDER [None]
  - PERSONALITY CHANGE [None]
  - POLYSUBSTANCE ABUSE [None]
  - THINKING ABNORMAL [None]
